FAERS Safety Report 11221274 (Version 1)
Quarter: 2015Q2

REPORT INFORMATION
  Report Type: Spontaneous
  Country: IT (occurrence: IT)
  Receive Date: 20150626
  Receipt Date: 20150626
  Transmission Date: 20150821
  Serious: Yes (Hospitalization)
  Sender: FDA-Public Use
  Company Number: IT-SA-2015SA090173

PATIENT
  Age: 94 Year
  Sex: Female
  Weight: 60 kg

DRUGS (7)
  1. CARDIRENE [Suspect]
     Active Substance: ASPIRIN DL-LYSINE
     Indication: THROMBOCYTOSIS
     Dosage: DOSE:1 UNIT(S)
     Route: 048
     Dates: start: 20100101, end: 20150303
  2. INDERAL [Concomitant]
     Active Substance: PROPRANOLOL HYDROCHLORIDE
     Dosage: 40 MG TABLETS
     Route: 048
  3. MODURETIC 5-50 [Concomitant]
     Active Substance: AMILORIDE HYDROCHLORIDE\HYDROCHLOROTHIAZIDE
     Dosage: 5 MG/50 MG TABLETS
     Route: 048
  4. CLEXANE [Suspect]
     Active Substance: ENOXAPARIN SODIUM
     Indication: PROPHYLAXIS
     Dosage: DOSE:1 UNIT(S)
     Route: 048
     Dates: start: 20150226, end: 20150303
  5. LORTAAN [Concomitant]
     Active Substance: LOSARTAN POTASSIUM
     Dosage: 50 MG FILM COATED TABLETS DOSE:1 UNIT(S)
  6. NORVASC [Concomitant]
     Active Substance: AMLODIPINE BESYLATE
     Dosage: 5 MG TABLETS
     Route: 048
  7. ONCO-CARBIDE [Concomitant]
     Active Substance: HYDROXYUREA
     Dosage: 500 MG HARD CAPSULES

REACTIONS (3)
  - International normalised ratio increased [Recovering/Resolving]
  - Cerebral haemorrhage [Recovering/Resolving]
  - Aphasia [Recovering/Resolving]

NARRATIVE: CASE EVENT DATE: 20150226
